FAERS Safety Report 8356770-3 (Version None)
Quarter: 2012Q2

REPORT INFORMATION
  Report Type: 
  Country: None (occurrence: None)
  Receive Date: 20120514
  Receipt Date: 20120508
  Transmission Date: 20120825
  Serious: No
  Sender: FDA-Public Use
  Company Number: US-BAYER-2012-045228

PATIENT
  Sex: Female

DRUGS (1)
  1. MIRENA [Suspect]
     Indication: CONTRACEPTION
     Dosage: 20 MCG/24HR, CONT
     Route: 015
     Dates: start: 20120215

REACTIONS (10)
  - DIZZINESS [None]
  - DEVICE EXPULSION [None]
  - NAUSEA [None]
  - FATIGUE [None]
  - DYSPEPSIA [None]
  - POLLAKIURIA [None]
  - HICCUPS [None]
  - ABDOMINAL PAIN [None]
  - APATHY [None]
  - FEELING ABNORMAL [None]
